FAERS Safety Report 25768069 (Version 1)
Quarter: 2025Q3

REPORT INFORMATION
  Report Type: Spontaneous
  Country: US (occurrence: US)
  Receive Date: 20250905
  Receipt Date: 20250905
  Transmission Date: 20251020
  Serious: No
  Sender: DOMPE FARMACEUTICI
  Company Number: US-FARMAPROD-202505-1738

PATIENT
  Age: 75 Year
  Sex: Male
  Weight: 103.42 kg

DRUGS (20)
  1. OXERVATE [Suspect]
     Active Substance: CENEGERMIN-BKBJ
     Indication: Neurotrophic keratopathy
     Route: 047
     Dates: start: 20250509
  2. OXERVATE [Suspect]
     Active Substance: CENEGERMIN-BKBJ
  3. BISOPROLOL FUMARATE [Concomitant]
     Active Substance: BISOPROLOL FUMARATE
  4. METHOCARBAMOL [Concomitant]
     Active Substance: METHOCARBAMOL
  5. ROPINIROLE HYDROCHLORIDE [Concomitant]
     Active Substance: ROPINIROLE HYDROCHLORIDE
  6. FAMOTIDINE [Concomitant]
     Active Substance: FAMOTIDINE
  7. DUTASTERIDE [Concomitant]
     Active Substance: DUTASTERIDE
  8. VALACYCLOVIR [Concomitant]
     Active Substance: VALACYCLOVIR HYDROCHLORIDE
  9. NITROGLYCERIN [Concomitant]
     Active Substance: NITROGLYCERIN
  10. OMEGA-3-ACID ETHYL ESTERS [Concomitant]
     Active Substance: OMEGA-3-ACID ETHYL ESTERS
  11. CEQUA [Concomitant]
     Active Substance: CYCLOSPORINE
  12. FERROUS SULFATE [Concomitant]
     Active Substance: FERROUS SULFATE
  13. SYMTUZA [Concomitant]
     Active Substance: COBICISTAT\DARUNAVIR\EMTRICITABINE\TENOFOVIR ALAFENAMIDE
  14. VITAMIN B12 [Concomitant]
     Active Substance: CYANOCOBALAMIN
  15. SERTRALINE HYDROCHLORIDE [Concomitant]
     Active Substance: SERTRALINE HYDROCHLORIDE
  16. ROSUVASTATIN CALCIUM [Concomitant]
     Active Substance: ROSUVASTATIN CALCIUM
  17. PRASUGREL HYDROCHLORIDE [Concomitant]
     Active Substance: PRASUGREL HYDROCHLORIDE
  18. MIEBO [Concomitant]
     Active Substance: PERFLUOROHEXYLOCTANE
  19. TIVICAY [Concomitant]
     Active Substance: DOLUTEGRAVIR SODIUM
  20. METFORMIN HYDROCHLORIDE [Concomitant]
     Active Substance: METFORMIN HYDROCHLORIDE

REACTIONS (2)
  - Nausea [Unknown]
  - Photophobia [Unknown]

NARRATIVE: CASE EVENT DATE: 20250521
